FAERS Safety Report 19151652 (Version 1)
Quarter: 2021Q2

REPORT INFORMATION
  Report Type: Report from Study
  Country: US (occurrence: US)
  Receive Date: 20210419
  Receipt Date: 20210419
  Transmission Date: 20210717
  Serious: Yes (Death, Hospitalization, Other)
  Sender: FDA-Public Use
  Company Number: US-ACADIA PHARMACEUTICALS INC.-ACA-2021-PIM-000968

PATIENT
  Age: 72 Year
  Sex: Male

DRUGS (19)
  1. PREDNISONE. [Concomitant]
     Active Substance: PREDNISONE
  2. AMLODIPINE [Concomitant]
     Active Substance: AMLODIPINE BESYLATE
     Dosage: 5 MILLIGRAM
  3. NUPLAZID [Suspect]
     Active Substance: PIMAVANSERIN TARTRATE
     Indication: PARKINSON^S DISEASE PSYCHOSIS
     Dosage: 34 MILLIGRAM, QD
     Route: 048
     Dates: start: 20200916
  4. FERROUS SULFATE. [Concomitant]
     Active Substance: FERROUS SULFATE
     Dosage: 325 MILLIGRAM
  5. LOSARTAN. [Concomitant]
     Active Substance: LOSARTAN
     Dosage: 50 MILLIGRAM
  6. QUETIAPINE. [Concomitant]
     Active Substance: QUETIAPINE
     Dosage: 25 MILLIGRAM
  7. NUPLAZID [Suspect]
     Active Substance: PIMAVANSERIN TARTRATE
     Indication: HALLUCINATION
  8. SENNA [SENNOSIDE A+B] [Concomitant]
     Active Substance: SENNOSIDES A AND B
  9. CARBIDOPA/LEVODOPA [Concomitant]
     Active Substance: CARBIDOPA\LEVODOPA
     Dosage: 25?250 MG
  10. METFORMIN [Concomitant]
     Active Substance: METFORMIN HYDROCHLORIDE
     Dosage: 1000 MILLIGRAM
  11. SEVELAMER CARBONATE. [Concomitant]
     Active Substance: SEVELAMER CARBONATE
  12. MIRALAX [Concomitant]
     Active Substance: POLYETHYLENE GLYCOL 3350
  13. NIFEDIPINE. [Concomitant]
     Active Substance: NIFEDIPINE
  14. CARVEDILOL. [Concomitant]
     Active Substance: CARVEDILOL
     Dosage: 6.25 MG
  15. TYLENOL [Concomitant]
     Active Substance: ACETAMINOPHEN
     Dosage: 325 MILLIGRAM
  16. REPAGLINIDE. [Concomitant]
     Active Substance: REPAGLINIDE
     Dosage: 1 MILLIGRAM
  17. FUROSEMIDE. [Concomitant]
     Active Substance: FUROSEMIDE
     Dosage: 20 MILLIGRAM
  18. CALCIUM ACETATE. [Concomitant]
     Active Substance: CALCIUM ACETATE
  19. VITAMIN 2000 [Concomitant]

REACTIONS (7)
  - Aphasia [Not Recovered/Not Resolved]
  - COVID-19 [Recovered/Resolved]
  - Dysphagia [Not Recovered/Not Resolved]
  - Parkinson^s disease [Not Recovered/Not Resolved]
  - Oxygen saturation decreased [Not Recovered/Not Resolved]
  - Renal failure [Recovered/Resolved]
  - Hepatic failure [Not Recovered/Not Resolved]

NARRATIVE: CASE EVENT DATE: 2021
